FAERS Safety Report 15668606 (Version 4)
Quarter: 2019Q1

REPORT INFORMATION
  Report Type: Report from Study
  Country: US (occurrence: US)
  Receive Date: 20181129
  Receipt Date: 20190125
  Transmission Date: 20190417
  Serious: Yes (Hospitalization, Other)
  Sender: FDA-Public Use
  Company Number: US-TESARO-2018-TSO1996-US

PATIENT
  Age: 67 Year
  Sex: Female
  Weight: 63.5 kg

DRUGS (7)
  1. CARBOPLATIN. [Concomitant]
     Active Substance: CARBOPLATIN
     Indication: PRODUCT USED FOR UNKNOWN INDICATION
  2. GEMCITABINE [Concomitant]
     Active Substance: GEMCITABINE\GEMCITABINE HYDROCHLORIDE
     Indication: PRODUCT USED FOR UNKNOWN INDICATION
  3. VITAMIN D3 [Concomitant]
     Active Substance: CHOLECALCIFEROL
     Indication: PRODUCT USED FOR UNKNOWN INDICATION
     Dosage: 2000 IU, QD
     Route: 048
  4. ZEJULA [Suspect]
     Active Substance: NIRAPARIB
     Indication: OVARIAN CANCER
     Dosage: 300 MG, QPM 3 CAPSULES BY MOUTH ONCE DAILY
     Route: 048
     Dates: start: 20170607
  5. TAXOL [Concomitant]
     Active Substance: PACLITAXEL
     Indication: PRODUCT USED FOR UNKNOWN INDICATION
  6. ZEJULA [Suspect]
     Active Substance: NIRAPARIB
     Dosage: 300 MG, QD
     Route: 048
     Dates: end: 20190104
  7. CALCIUM ASCORBATE [Concomitant]
     Active Substance: CALCIUM ASCORBATE
     Indication: PRODUCT USED FOR UNKNOWN INDICATION
     Dosage: 500 MG, QD
     Route: 048

REACTIONS (14)
  - Hepatic cancer [Unknown]
  - Thrombocytopenia [Unknown]
  - Headache [Unknown]
  - Stomatitis [Unknown]
  - Oral pain [Unknown]
  - Rash [Unknown]
  - Mouth haemorrhage [Unknown]
  - White blood cell count decreased [Unknown]
  - Malaise [Unknown]
  - Pharyngeal erythema [Unknown]
  - Asthenia [Recovered/Resolved]
  - Pancytopenia [Unknown]
  - Oral mucosal blistering [Unknown]
  - Haemoptysis [Unknown]

NARRATIVE: CASE EVENT DATE: 201901
